FAERS Safety Report 9060398 (Version 2)
Quarter: 2013Q1

REPORT INFORMATION
  Report Type: Spontaneous
  Country: CN (occurrence: CN)
  Receive Date: 20130212
  Receipt Date: 20130308
  Transmission Date: 20140127
  Serious: Yes (Death, Other)
  Sender: FDA-Public Use
  Company Number: CN-NAPPMUNDI-GBR-2013-0013167

PATIENT
  Sex: Male

DRUGS (1)
  1. OXYCODONE HCL PR TABLET 10 MG [Suspect]
     Indication: PRODUCT USED FOR UNKNOWN INDICATION
     Dosage: 10 MG, DAILY
     Route: 048
     Dates: start: 20121205, end: 201212

REACTIONS (5)
  - Loss of consciousness [Recovered/Resolved]
  - Hallucination [Recovered/Resolved]
  - Hypersomnia [Recovered/Resolved]
  - Speech disorder [Recovered/Resolved]
  - Disease progression [Fatal]
